FAERS Safety Report 5335860-3 (Version None)
Quarter: 2007Q2

REPORT INFORMATION
  Report Type: 
  Country: None (occurrence: None)
  Receive Date: 20070301
  Receipt Date: 20060814
  Transmission Date: 20071010
  Serious: Yes (Hospitalization, Other)
  Sender: FDA-Public Use
  Company Number: 228486

PATIENT
  Age: 9 Year
  Sex: Male
  Weight: 31.6 kg

DRUGS (2)
  1. NUTROPIN [Suspect]
     Indication: GROWTH HORMONE DEFICIENCY
     Dosage: SEE IMAGE
     Route: 058
     Dates: start: 20060401
  2. MOTRIN [Concomitant]

REACTIONS (1)
  - BENIGN INTRACRANIAL HYPERTENSION [None]
